FAERS Safety Report 4482902-3 (Version None)
Quarter: 2004Q3

REPORT INFORMATION
  Report Type: 
  Country: None (occurrence: None)
  Receive Date: 20040921
  Receipt Date: 20040701
  Transmission Date: 20050211
  Serious: Yes (Other)
  Sender: FDA-Public Use
  Company Number: 163-20785-04070101(0)

PATIENT
  Age: 32 Year
  Sex: Male

DRUGS (2)
  1. THALOMID [Suspect]
     Indication: APHTHOUS STOMATITIS
     Dosage: 50 MG, DAILY, ORAL
     Route: 048
     Dates: start: 20040623
  2. THALOMID [Suspect]
     Indication: HIV INFECTION
     Dosage: 50 MG, DAILY, ORAL
     Route: 048
     Dates: start: 20040623

REACTIONS (1)
  - DEAFNESS [None]
